FAERS Safety Report 9348351 (Version 2)
Quarter: 2013Q3

REPORT INFORMATION
  Report Type: Spontaneous
  Country: FR (occurrence: FR)
  Receive Date: 20130614
  Receipt Date: 20130826
  Transmission Date: 20140515
  Serious: Yes (Hospitalization)
  Sender: FDA-Public Use
  Company Number: FR-PFIZER INC-2013169189

PATIENT
  Age: 61 Year
  Sex: Female

DRUGS (13)
  1. TAZOCILLINE [Suspect]
     Indication: BACTERIAL SEPSIS
     Dosage: 1 DF, 3X/DAY
     Route: 042
     Dates: start: 20130416
  2. TAZOCILLINE [Suspect]
     Indication: PYREXIA
  3. CIFLOX [Suspect]
     Indication: BACTERIAL SEPSIS
     Dosage: 500 MG, 2X/DAY
     Route: 048
     Dates: start: 20130418
  4. VENLAFAXINE [Concomitant]
     Indication: DEPRESSION
     Dosage: 37.5 MG, 3X/DAY
     Route: 048
     Dates: start: 20130422
  5. LEXOMIL ROCHE [Concomitant]
     Indication: ANXIETY
     Dosage: 3 MG, 1X/DAY
     Route: 048
     Dates: start: 20130415
  6. DUROGESIC [Concomitant]
     Indication: PAIN
     Dosage: 1 DF, 1X/DAY
     Route: 062
     Dates: start: 20130415
  7. INEXIUM [Concomitant]
     Dosage: 40 MG, DAILY
     Dates: start: 20130415
  8. VOGALENE [Concomitant]
     Dosage: 7.5 MG, 3X/DAY
     Route: 048
     Dates: start: 20130417
  9. DOLIPRANE [Concomitant]
     Dosage: 1 G, 4X/DAY
     Route: 048
     Dates: start: 20130417
  10. INNOHEP [Concomitant]
     Dosage: 10000 IU, DAILY
     Route: 058
     Dates: start: 20130418
  11. SPASFON [Concomitant]
     Dosage: 80 MG, 3X/DAY
     Route: 048
     Dates: start: 20130417
  12. FUNGIZONE [Concomitant]
     Dosage: 3 DF, DAILY
     Dates: start: 20130417
  13. ACTISKENAN [Concomitant]
     Dosage: 10 MG AS NEEDED
     Route: 048
     Dates: start: 20130417

REACTIONS (3)
  - Agranulocytosis [Not Recovered/Not Resolved]
  - Bacterial sepsis [Recovered/Resolved]
  - Rash [Unknown]
